FAERS Safety Report 19447581 (Version 1)
Quarter: 2021Q2

REPORT INFORMATION
  Report Type: Spontaneous
  Country: AU (occurrence: AU)
  Receive Date: 20210622
  Receipt Date: 20210622
  Transmission Date: 20210717
  Serious: Yes (Death, Other)
  Sender: FDA-Public Use
  Company Number: AU-STRIDES ARCOLAB LIMITED-2021SP006610

PATIENT
  Age: 68 Year
  Sex: Male

DRUGS (10)
  1. MYCOPHENOLATE MOFETIL. [Suspect]
     Active Substance: MYCOPHENOLATE MOFETIL
     Dosage: 500 MILLIGRAM, PER DAY, FROM
     Route: 065
     Dates: start: 1996, end: 2011
  2. VALGANCICLOVIR. [Suspect]
     Active Substance: VALGANCICLOVIR
     Dosage: UNK
     Route: 065
     Dates: start: 2013, end: 2014
  3. ACICLOVIR [Suspect]
     Active Substance: ACYCLOVIR
     Indication: CYTOMEGALOVIRUS INFECTION
     Dosage: 800 MILLIGRAM, EVERY 8 HOURS
     Route: 048
     Dates: start: 1996, end: 1996
  4. MYCOPHENOLATE MOFETIL. [Suspect]
     Active Substance: MYCOPHENOLATE MOFETIL
     Indication: RENAL TRANSPLANT
     Dosage: 250 MILLIGRAM, PER DAY, TONIGHT
     Route: 065
     Dates: start: 1996, end: 2011
  5. GANCICLOVIR. [Suspect]
     Active Substance: GANCICLOVIR
     Dosage: UNK
     Route: 065
     Dates: start: 2012
  6. MYCOPHENOLATE MOFETIL. [Suspect]
     Active Substance: MYCOPHENOLATE MOFETIL
     Dosage: 250 MILLIGRAM, EVERY 12 HRS
     Route: 065
     Dates: start: 2011, end: 2013
  7. PREDNISOLONE. [Suspect]
     Active Substance: PREDNISOLONE
     Indication: RENAL TRANSPLANT
     Dosage: 5 MILLIGRAM, PER DAY
     Route: 065
     Dates: start: 1996
  8. VALGANCICLOVIR. [Suspect]
     Active Substance: VALGANCICLOVIR
     Indication: CYTOMEGALOVIRUS INFECTION
     Dosage: UNK
     Route: 065
     Dates: start: 2011, end: 2012
  9. AZATHIOPRINE. [Suspect]
     Active Substance: AZATHIOPRINE
     Indication: RENAL TRANSPLANT
     Dosage: UNK
     Route: 065
     Dates: start: 201311, end: 2014
  10. GANCICLOVIR. [Suspect]
     Active Substance: GANCICLOVIR
     Indication: CYTOMEGALOVIRUS INFECTION
     Dosage: UNK
     Route: 042
     Dates: start: 1996, end: 1996

REACTIONS (13)
  - Malnutrition [Fatal]
  - Pneumothorax [Fatal]
  - Cytomegalovirus gastrointestinal ulcer [Fatal]
  - Haematemesis [Fatal]
  - Respiratory disorder [Fatal]
  - Oesophageal ulcer [Fatal]
  - Cytomegalovirus oesophagitis [Fatal]
  - Weight decreased [Fatal]
  - Drug resistance [Fatal]
  - Fistula of small intestine [Recovered/Resolved]
  - Oesophagopleural fistula [Fatal]
  - Cytomegalovirus duodenitis [Recovered/Resolved]
  - Gastritis [Recovered/Resolved]

NARRATIVE: CASE EVENT DATE: 2011
